FAERS Safety Report 15720366 (Version 2)
Quarter: 2019Q1

REPORT INFORMATION
  Report Type: Spontaneous
  Country: BR (occurrence: BR)
  Receive Date: 20181213
  Receipt Date: 20190103
  Transmission Date: 20190417
  Serious: Yes (Hospitalization, Other)
  Sender: FDA-Public Use
  Company Number: BR-SA-2018SA336674

PATIENT
  Sex: Male
  Weight: 80 kg

DRUGS (2)
  1. LANTUS [Suspect]
     Active Substance: INSULIN GLARGINE
     Indication: DIABETES MELLITUS
     Dosage: 30IU IN THE MORNING AND 21IU AT NIGHT
     Route: 058
  2. HUMALOG [Concomitant]
     Active Substance: INSULIN LISPRO
     Dosage: UNK
     Route: 058

REACTIONS (6)
  - Wrong technique in product usage process [Unknown]
  - Diabetic ketoacidosis [Recovered/Resolved]
  - Multiple use of single-use product [Unknown]
  - Hyperglycaemia [Unknown]
  - Product use issue [Unknown]
  - Expired device used [Unknown]

NARRATIVE: CASE EVENT DATE: 2018
